FAERS Safety Report 8073293-X (Version None)
Quarter: 2012Q1

REPORT INFORMATION
  Report Type: 
  Country: None (occurrence: None)
  Receive Date: 20120123
  Receipt Date: 20120123
  Transmission Date: 20120608
  Serious: Yes (Hospitalization)
  Sender: FDA-Public Use
  Company Number: None

PATIENT
  Sex: Female
  Weight: 58.06 kg

DRUGS (1)
  1. GEMCITABINE HYDROCHLORIDE [Suspect]
     Dosage: 1650 MG
     Dates: end: 20120110

REACTIONS (4)
  - CELLULITIS [None]
  - PAIN [None]
  - ERYTHEMA [None]
  - OEDEMA PERIPHERAL [None]
